FAERS Safety Report 4503421-1 (Version None)
Quarter: 2004Q4

REPORT INFORMATION
  Report Type: 
  Country: None (occurrence: None)
  Receive Date: 20041117
  Receipt Date: 20041105
  Transmission Date: 20050328
  Serious: Yes (Disabling)
  Sender: FDA-Public Use
  Company Number: GB-JNJFOC-20041102042

PATIENT
  Age: 25 Year
  Sex: Female

DRUGS (4)
  1. TOPAMAX [Suspect]
     Indication: EPILEPSY
     Route: 049
  2. PHENOBARBITONE [Concomitant]
     Indication: EPILEPSY
     Dosage: 90MG NOCTE
     Route: 049
  3. PHENYTOIN [Concomitant]
     Indication: EPILEPSY
     Dosage: 210MG NOCTE
     Route: 049
  4. ATENOLOL [Concomitant]
     Route: 049

REACTIONS (2)
  - LETHARGY [None]
  - VISUAL DISTURBANCE [None]
